FAERS Safety Report 16187778 (Version 1)
Quarter: 2019Q2

REPORT INFORMATION
  Report Type: Spontaneous
  Country: CO (occurrence: CO)
  Receive Date: 20190412
  Receipt Date: 20190412
  Transmission Date: 20190711
  Serious: Yes (Other)
  Sender: FDA-Public Use
  Company Number: CO-009507513-1904COL003698

PATIENT
  Sex: Female
  Weight: 50 kg

DRUGS (1)
  1. IMPLANON [Suspect]
     Active Substance: ETONOGESTREL
     Indication: CONTRACEPTIVE IMPLANT
     Dosage: IMPLANT
     Route: 059
     Dates: start: 201812

REACTIONS (4)
  - Syncope [Unknown]
  - Migraine [Unknown]
  - Dizziness [Unknown]
  - Loss of consciousness [Unknown]
